FAERS Safety Report 6266933-9 (Version None)
Quarter: 2009Q3

REPORT INFORMATION
  Report Type: 
  Country: None (occurrence: None)
  Receive Date: 20090710
  Receipt Date: 20090710
  Transmission Date: 20100115
  Serious: Yes (Hospitalization)
  Sender: FDA-Public Use
  Company Number: None

PATIENT
  Age: 53 Year
  Sex: Male
  Weight: 93 kg

DRUGS (2)
  1. FLUDARABINE PHOSPHATE [Suspect]
     Indication: NON-HODGKIN'S LYMPHOMA
     Dosage: 75MG X 5 DAYS IV
     Route: 042
     Dates: start: 20090422, end: 20090426
  2. CYCLOPHOSPHAMIDE [Suspect]
     Indication: NON-HODGKIN'S LYMPHOMA
     Dosage: 2140 MG X 2 DAYS IV
     Route: 042
     Dates: start: 20090427, end: 20090428

REACTIONS (4)
  - ASTHENIA [None]
  - BACTERIAL INFECTION [None]
  - BLOOD DISORDER [None]
  - SYNCOPE [None]
